FAERS Safety Report 18692658 (Version 2)
Quarter: 2021Q2

REPORT INFORMATION
  Report Type: Spontaneous
  Country: JP (occurrence: JP)
  Receive Date: 20210104
  Receipt Date: 20210409
  Transmission Date: 20210717
  Serious: Yes (Death, Hospitalization, Other)
  Sender: FDA-Public Use
  Company Number: JP-BRISTOL-MYERS SQUIBB COMPANY-BMS-2018-034360

PATIENT
  Age: 81 Year
  Sex: Male
  Weight: 76 kg

DRUGS (8)
  1. YERVOY [Suspect]
     Active Substance: IPILIMUMAB
     Indication: MALIGNANT MELANOMA
     Dosage: 250 MILLIGRAM, Q3WK
     Route: 041
     Dates: start: 20180409, end: 20180507
  2. DILTIAZEM HYDROCHLORIDE. [Concomitant]
     Active Substance: DILTIAZEM HYDROCHLORIDE
     Indication: HYPERTENSION
     Dosage: 100 MILLIGRAM, BID
     Route: 048
     Dates: start: 20130608, end: 20180520
  3. OPDIVO [Suspect]
     Active Substance: NIVOLUMAB
     Indication: MALIGNANT MELANOMA
     Dosage: 220 MILLIGRAM
     Route: 041
     Dates: start: 20171030, end: 20180308
  4. OLMESARTAN OD [Concomitant]
     Active Substance: OLMESARTAN MEDOXOMIL
     Indication: HYPERTENSION
     Dosage: 10 MILLIGRAM, QD
     Route: 048
     Dates: start: 20130711, end: 20180520
  5. CELECOX [Concomitant]
     Active Substance: CELECOXIB
     Indication: MALIGNANT MELANOMA
     Dosage: 100 MILLIGRAM, BID
     Route: 048
     Dates: start: 20180322, end: 20180520
  6. NEXIUM [Concomitant]
     Active Substance: ESOMEPRAZOLE MAGNESIUM
     Indication: PROPHYLAXIS
     Dosage: 20 MILLIGRAM, QD
     Route: 048
     Dates: start: 20130608, end: 20180520
  7. ROSUVASTATIN OD [Concomitant]
     Indication: DYSLIPIDAEMIA
     Dosage: 2.5 MILLIGRAM, QD
     Route: 048
     Dates: start: 20130608, end: 20180520
  8. FERROUS SODIUM CITRATE [Concomitant]
     Active Substance: SODIUM FERROUS CITRATE
     Indication: MALIGNANT MELANOMA
     Dosage: 50 MILLIGRAM, BID
     Route: 048
     Dates: start: 20170829, end: 20180520

REACTIONS (3)
  - Pruritus [Unknown]
  - Constipation [Unknown]
  - Hepatitis fulminant [Fatal]

NARRATIVE: CASE EVENT DATE: 20171031
